FAERS Safety Report 10196684 (Version 1)
Quarter: 2014Q2

REPORT INFORMATION
  Report Type: Spontaneous
  Country: US (occurrence: None)
  Receive Date: 20140523
  Receipt Date: 20140523
  Transmission Date: 20141212
  Serious: No
  Sender: FDA-Public Use
  Company Number: None

PATIENT
  Age: 31 Year
  Sex: Female
  Weight: 72.1 kg

DRUGS (10)
  1. METRONIDAZOLE [Suspect]
     Indication: ABDOMINAL INFECTION
     Route: 042
     Dates: start: 20140511, end: 20140517
  2. CIPROFLOXACIN [Concomitant]
  3. MAGNESIUM SULFATE [Concomitant]
  4. PANTOPRAZOLE [Concomitant]
  5. POTASSIUM CHLORIDE [Concomitant]
  6. HYDROMORPHONE [Concomitant]
  7. PROMETHAZINE [Concomitant]
  8. ONDANSETRON [Concomitant]
  9. METOCLOPRAMIDE [Concomitant]
  10. PROCHLORPERAZINE [Concomitant]

REACTIONS (1)
  - Neuropathy peripheral [None]
